FAERS Safety Report 11398264 (Version 2)
Quarter: 2015Q3

REPORT INFORMATION
  Report Type: Spontaneous
  Country: CZ (occurrence: CZ)
  Receive Date: 20150820
  Receipt Date: 20150824
  Transmission Date: 20151125
  Serious: Yes (Death, Hospitalization, Other)
  Sender: FDA-Public Use
  Company Number: CZ-009507513-1508CZE003638

PATIENT
  Age: 4 Year
  Sex: Female
  Weight: 18 kg

DRUGS (4)
  1. KEYTRUDA [Suspect]
     Active Substance: PEMBROLIZUMAB
     Dosage: 1 DOSE (UNSPECIFIED)
     Dates: start: 20150803, end: 20150803
  2. KEYTRUDA [Suspect]
     Active Substance: PEMBROLIZUMAB
     Dosage: 1 DOSE (UNSPECIFIED)
     Dates: start: 20150624, end: 20150624
  3. KEYTRUDA [Suspect]
     Active Substance: PEMBROLIZUMAB
     Indication: RHABDOMYOSARCOMA
     Dosage: 1 DOSE (UNSPECIFIED)
     Dates: start: 20150525, end: 20150525
  4. KEYTRUDA [Suspect]
     Active Substance: PEMBROLIZUMAB
     Dosage: 1 DOSE (UNSPECIFIED)
     Dates: start: 20150715, end: 20150715

REACTIONS (3)
  - Blood thyroid stimulating hormone increased [Unknown]
  - Malignant neoplasm progression [Fatal]
  - Off label use [Unknown]

NARRATIVE: CASE EVENT DATE: 2015
